FAERS Safety Report 9069093 (Version 1)
Quarter: 2013Q1

REPORT INFORMATION
  Report Type: Spontaneous
  Country: US (occurrence: US)
  Receive Date: 20130215
  Receipt Date: 20130215
  Transmission Date: 20140127
  Serious: Yes (Other)
  Sender: FDA-Public Use
  Company Number: US-BAYER-2013-019251

PATIENT
  Age: 24 Year
  Sex: Female

DRUGS (9)
  1. YASMIN [Suspect]
     Indication: DYSMENORRHOEA
  2. YAZ [Suspect]
  3. NAPROXEN [Concomitant]
     Dosage: UNK
     Route: 048
     Dates: start: 20080628
  4. HYDROCODONE W/ACETAMINOPHEN [Concomitant]
     Dosage: UNK
     Route: 048
     Dates: start: 20080628
  5. KETOROLAC [Concomitant]
     Dosage: UNK
     Route: 048
     Dates: start: 20060804
  6. NABUMETONE [Concomitant]
     Dosage: 500 MG, UNK
     Route: 048
     Dates: start: 20060808
  7. OMEPRAZOLE [Concomitant]
     Dosage: 20 MG, UNK
     Route: 048
     Dates: start: 20060816
  8. VICODIN [Concomitant]
  9. TORADOL [Concomitant]

REACTIONS (1)
  - Deep vein thrombosis [Recovered/Resolved]
